FAERS Safety Report 5833250-8 (Version None)
Quarter: 2008Q3

REPORT INFORMATION
  Report Type: 
  Country: None (occurrence: None)
  Receive Date: 20080804
  Receipt Date: 20080804
  Transmission Date: 20090109
  Serious: No
  Sender: FDA-Public Use
  Company Number: None

PATIENT
  Age: 53 Year
  Sex: Female

DRUGS (6)
  1. WELLBUTRIN SR [Suspect]
     Indication: DEPRESSION
     Dosage: 150MG BID 047
     Dates: start: 20080604, end: 20080724
  2. VENTOLIN [Concomitant]
  3. FLUTICASONE PROPIONATE [Concomitant]
  4. OMEPRAZOLE [Concomitant]
  5. ACTOS [Concomitant]
  6. AZMACORT [Concomitant]

REACTIONS (3)
  - PHARMACEUTICAL PRODUCT COMPLAINT [None]
  - PRURITUS [None]
  - REACTION TO DRUG EXCIPIENTS [None]
